FAERS Safety Report 17770319 (Version 1)
Quarter: 2020Q2

REPORT INFORMATION
  Report Type: Report from Study
  Country: ES (occurrence: ES)
  Receive Date: 20200512
  Receipt Date: 20200512
  Transmission Date: 20200714
  Serious: Yes (Hospitalization)
  Sender: FDA-Public Use
  Company Number: ES-ACCORD-181324

PATIENT
  Age: 54 Year
  Sex: Male

DRUGS (6)
  1. PREDNISONE. [Interacting]
     Active Substance: PREDNISONE
     Indication: CROHN^S DISEASE
     Dosage: PREDNISONE 886A
     Route: 048
     Dates: start: 201212
  2. METHOTREXATE. [Suspect]
     Active Substance: METHOTREXATE
     Indication: CROHN^S DISEASE
     Dosage: METHOTREXATE (418A)
     Route: 058
     Dates: start: 201303, end: 20170724
  3. SALOFALK [Concomitant]
     Indication: CROHN^S DISEASE
     Dosage: SALOFALK 1 G RECTAL FOAM, 1 PRESSURE PACK OF 14 APPLICATIONS
     Route: 054
     Dates: start: 201107, end: 20170724
  4. PENTASA [Concomitant]
     Active Substance: MESALAMINE
     Indication: CROHN^S DISEASE
     Dosage: PENTASA RECTAL SUSPENSION 1 G, 7 ENEMAS
     Route: 054
     Dates: start: 201204, end: 20170724
  5. FERPLEX [Concomitant]
     Indication: IRON DEFICIENCY ANAEMIA
     Dosage: FERPLEX 40 MG ORAL SOLUTION, 20 DRINKABLE VIALS OF 15 ML
     Route: 048
     Dates: start: 2012
  6. ACFOL [Concomitant]
     Active Substance: FOLIC ACID
     Dosage: STRENGTH: 5 MG TABLETS, 28 TABLETS
     Route: 048
     Dates: start: 201303, end: 20170724

REACTIONS (2)
  - Drug interaction [Unknown]
  - Herpes zoster [Recovering/Resolving]

NARRATIVE: CASE EVENT DATE: 20170721
